FAERS Safety Report 9839462 (Version 2)
Quarter: 2014Q1

REPORT INFORMATION
  Report Type: Report from Study
  Country: US (occurrence: US)
  Receive Date: 20140124
  Receipt Date: 20140206
  Transmission Date: 20141002
  Serious: Yes (Other)
  Sender: FDA-Public Use
  Company Number: US-ROCHE-1335322

PATIENT
  Age: 17 Year
  Sex: Female
  Weight: 36 kg

DRUGS (3)
  1. OMALIZUMAB [Suspect]
     Indication: FOOD ALLERGY
     Dosage: FIRST DOSE
     Route: 065
     Dates: start: 20130911
  2. OMALIZUMAB [Suspect]
     Indication: FOOD ALLERGY
     Route: 065
  3. ALBUTEROL [Concomitant]
     Route: 065

REACTIONS (1)
  - Anaphylactic reaction [Unknown]
